FAERS Safety Report 7466739-9 (Version None)
Quarter: 2011Q2

REPORT INFORMATION
  Report Type: 
  Country: None (occurrence: None)
  Receive Date: 20110509
  Receipt Date: 20100823
  Transmission Date: 20111010
  Serious: No
  Sender: FDA-Public Use
  Company Number: US-ALEXION-A201001057

PATIENT

DRUGS (5)
  1. FISH OIL [Concomitant]
     Indication: BLOOD CHOLESTEROL
     Dosage: 2 IN AM; 2 AT NIGHT
     Route: 048
  2. COUMADIN [Concomitant]
     Dosage: 13 MG, 3 DAYS A WEEK ALTERNATING
     Route: 048
  3. LORAZEPAM [Concomitant]
     Indication: ANXIETY
     Dosage: 1 MG, PRN
     Route: 048
  4. SOLIRIS [Suspect]
     Indication: PAROXYSMAL NOCTURNAL HAEMOGLOBINURIA
     Dosage: UNK
     Route: 042
  5. COUMADIN [Concomitant]
     Indication: THROMBOSIS
     Dosage: 12.5 MG, 4 DAYS A WEEK ALTERNATING
     Route: 048

REACTIONS (4)
  - URINARY TRACT INFECTION [None]
  - HYPERCHOLESTEROLAEMIA [None]
  - BLOOD URINE PRESENT [None]
  - BLOOD TRIGLYCERIDES INCREASED [None]
